FAERS Safety Report 16628879 (Version 1)
Quarter: 2019Q3

REPORT INFORMATION
  Report Type: Spontaneous
  Country: DE (occurrence: DE)
  Receive Date: 20190725
  Receipt Date: 20190725
  Transmission Date: 20191004
  Serious: Yes (Death, Hospitalization)
  Sender: FDA-Public Use
  Company Number: DE-PFIZER INC-2019312124

PATIENT
  Age: 70 Year
  Sex: Male
  Weight: 82 kg

DRUGS (11)
  1. PANITUMUMAB [Suspect]
     Active Substance: PANITUMUMAB
     Dosage: UNK MG, UNK
  2. ALLOPURINOL. [Concomitant]
     Active Substance: ALLOPURINOL
     Dosage: 100 MG, 0-0-1-0
  3. OXALIPLATIN. [Suspect]
     Active Substance: OXALIPLATIN
     Dosage: UNK MG, UNK
  4. CANDESARTAN. [Concomitant]
     Active Substance: CANDESARTAN
     Dosage: 32 MG, 0.5-0-0-0
  5. RIOPAN [MAGALDRATE] [Concomitant]
     Active Substance: MAGALDRATE
     Dosage: 160 MG, 0-0-0-1
  6. CARVEDILOL. [Concomitant]
     Active Substance: CARVEDILOL
     Dosage: 12.5 MG, 1-0-1-0
  7. XIPAMID [Concomitant]
     Active Substance: XIPAMIDE
     Dosage: 10 MG, 1-0-0-0
  8. METFORMIN [Concomitant]
     Active Substance: METFORMIN HYDROCHLORIDE
     Dosage: 850 MG, 1-0-1-0
  9. FLUOROURACIL. [Suspect]
     Active Substance: FLUOROURACIL
     Dosage: UNK MG, UNK
  10. MOVICOL [Concomitant]
     Active Substance: POLYETHYLENE GLYCOL 3350\POTASSIUM CHLORIDE\SODIUM BICARBONATE\SODIUM CHLORIDE
     Dosage: UNK MG, 1-0-0-0
  11. NOVOTHYRAL [Concomitant]
     Active Substance: LEVOTHYROXINE SODIUM\LIOTHYRONINE SODIUM
     Dosage: 75/15 UG, 1-0-0-0

REACTIONS (5)
  - Pyrexia [Unknown]
  - General physical health deterioration [Unknown]
  - Asthenia [Unknown]
  - Decreased appetite [Unknown]
  - Diarrhoea [Unknown]
